FAERS Safety Report 6478513-0 (Version None)
Quarter: 2009Q4

REPORT INFORMATION
  Report Type: 
  Country: None (occurrence: None)
  Receive Date: 20091207
  Receipt Date: 20091123
  Transmission Date: 20100525
  Serious: No
  Sender: FDA-Public Use
  Company Number: US-MYLANLABS-2009S1020176

PATIENT
  Age: 68 Year
  Sex: Female

DRUGS (3)
  1. AZATHIOPRINE [Suspect]
     Indication: PEMPHIGUS
     Dosage: 50MG TWICE DAILY
  2. AZATHIOPRINE [Suspect]
     Dosage: 75MG TWICE DAILY
  3. PREDNISONE [Concomitant]
     Indication: PEMPHIGUS

REACTIONS (4)
  - HYPERSENSITIVITY [None]
  - LIVER FUNCTION TEST ABNORMAL [None]
  - NAIL DISCOLOURATION [None]
  - NEUTROPENIA [None]
